FAERS Safety Report 10184599 (Version 2)
Quarter: 2014Q2

REPORT INFORMATION
  Report Type: Report from Study
  Country: FR (occurrence: FR)
  Receive Date: 20140521
  Receipt Date: 20140521
  Transmission Date: 20141212
  Serious: Yes (Hospitalization)
  Sender: FDA-Public Use
  Company Number: FR-ROCHE-1164748

PATIENT
  Age: 46 Year
  Sex: Female

DRUGS (13)
  1. MABTHERA [Suspect]
     Indication: RHEUMATOID ARTHRITIS
     Dosage: DAY 1
     Route: 041
     Dates: start: 20070928
  2. MABTHERA [Suspect]
     Dosage: DAY 15
     Route: 041
     Dates: start: 20071012
  3. MABTHERA [Suspect]
     Dosage: DAY 1
     Route: 041
     Dates: start: 20081106
  4. MABTHERA [Suspect]
     Dosage: DAY 15
     Route: 041
     Dates: start: 20081120
  5. MABTHERA [Suspect]
     Dosage: DAY 1
     Route: 041
     Dates: start: 20090923
  6. MABTHERA [Suspect]
     Dosage: DAY 15
     Route: 041
     Dates: start: 20091013
  7. MABTHERA [Suspect]
     Dosage: DAY 1
     Route: 041
     Dates: start: 20101216
  8. MABTHERA [Suspect]
     Dosage: DAY 15
     Route: 041
     Dates: start: 20110107
  9. CORTANCYL [Concomitant]
     Route: 065
  10. CORTANCYL [Concomitant]
     Route: 065
  11. CORTANCYL [Concomitant]
     Route: 065
  12. METHYLPREDNISOLONE [Concomitant]
     Route: 065
  13. ETANERCEPT [Concomitant]
     Indication: RHEUMATOID ARTHRITIS

REACTIONS (6)
  - Pneumonia bacterial [Recovered/Resolved]
  - Bronchial disorder [Recovered/Resolved]
  - Infusion related reaction [Recovered/Resolved]
  - Rash [Recovered/Resolved]
  - Lung infection [Recovered/Resolved]
  - Lung infection [Recovered/Resolved]
